FAERS Safety Report 5201690-6 (Version None)
Quarter: 2006Q4

REPORT INFORMATION
  Report Type: 
  Country: None (occurrence: None)
  Receive Date: 20061012
  Receipt Date: 20060406
  Transmission Date: 20070319
  Serious: Yes (Hospitalization, Other)
  Sender: FDA-Public Use
  Company Number: 13863

PATIENT
  Age: 76 Year
  Sex: Female

DRUGS (7)
  1. METHOTREXATE [Suspect]
     Indication: ARTHRITIS
     Dosage: 15 MG WEEKLY IV
     Route: 042
     Dates: start: 20060213, end: 20060301
  2. METHOTREXATE [Suspect]
     Indication: ARTHRITIS
     Dosage: 2.5 MG 3/WK PO
     Route: 048
     Dates: start: 20051012, end: 20060101
  3. METHOTREXATE [Suspect]
     Indication: ARTHRITIS
     Dosage: 2.5 MG OTH PO
     Route: 048
     Dates: start: 20060101, end: 20060404
  4. HYZAAR [Concomitant]
  5. TOPROL-XL [Concomitant]
  6. NORVASC [Concomitant]
  7. ZOLOFT [Concomitant]

REACTIONS (1)
  - PNEUMONITIS [None]
